FAERS Safety Report 24860998 (Version 1)
Quarter: 2025Q1

REPORT INFORMATION
  Report Type: Report from Study
  Country: US (occurrence: US)
  Receive Date: 20250120
  Receipt Date: 20250120
  Transmission Date: 20250408
  Serious: Yes (Hospitalization)
  Sender: ABBVIE
  Company Number: US-ABBVIE-6036913

PATIENT
  Age: 51 Year
  Sex: Female

DRUGS (1)
  1. SKYRIZI [Suspect]
     Active Substance: RISANKIZUMAB-RZAA
     Indication: Colitis ulcerative
     Route: 058
     Dates: start: 20240828

REACTIONS (7)
  - Drug hypersensitivity [Recovered/Resolved]
  - Thyroid mass [Not Recovered/Not Resolved]
  - Tooth infection [Not Recovered/Not Resolved]
  - Nodule [Not Recovered/Not Resolved]
  - Mass [Not Recovered/Not Resolved]
  - Haematochezia [Unknown]
  - Feeling abnormal [Recovering/Resolving]

NARRATIVE: CASE EVENT DATE: 20241125
